FAERS Safety Report 9154120 (Version 3)
Quarter: 2013Q4

REPORT INFORMATION
  Report Type: Spontaneous
  Country: US (occurrence: US)
  Receive Date: 20130311
  Receipt Date: 20131230
  Transmission Date: 20140711
  Serious: No
  Sender: FDA-Public Use
  Company Number: US-PFIZER INC-2013080181

PATIENT
  Age: 67 Year
  Sex: Female
  Weight: 71.2 kg

DRUGS (6)
  1. ADVIL [Suspect]
     Indication: ARTHRALGIA
     Dosage: UNK, AS NEEDED
     Route: 048
  2. ADVIL [Suspect]
     Indication: HEADACHE
     Dosage: UNK
  3. LISINOPRIL [Concomitant]
     Indication: BLOOD PRESSURE ABNORMAL
     Dosage: 5 MG, UNK
  4. CLONAZEPAM [Concomitant]
     Indication: NERVOUS SYSTEM DISORDER
     Dosage: UNK, AS NEEDED
  5. CYCLOBENZAPRINE HYDROCHLORIDE [Concomitant]
     Indication: INTERVERTEBRAL DISC PROTRUSION
     Dosage: UNK, ONCE DAILY AT NIGHT
  6. CYCLOBENZAPRINE HYDROCHLORIDE [Concomitant]
     Indication: ARTHRITIS

REACTIONS (4)
  - Poor quality drug administered [Unknown]
  - Abdominal discomfort [Unknown]
  - Nausea [Recovered/Resolved]
  - Product odour abnormal [Unknown]
